FAERS Safety Report 20258450 (Version 1)
Quarter: 2021Q4

REPORT INFORMATION
  Report Type: Spontaneous
  Country: DE (occurrence: DE)
  Receive Date: 20211230
  Receipt Date: 20211230
  Transmission Date: 20220303
  Serious: Yes (Hospitalization)
  Sender: FDA-Public Use
  Company Number: DE-ADRED-07304-01

PATIENT
  Age: 28 Year
  Sex: Female
  Weight: 113 kg

DRUGS (3)
  1. ESCITALOPRAM [Suspect]
     Active Substance: ESCITALOPRAM OXALATE
     Dosage: 20 MILLIGRAM DAILY;  1-0-0-0
     Route: 048
  2. OLMESARTAN [Suspect]
     Active Substance: OLMESARTAN
     Dosage: 20 MILLIGRAM DAILY;  0-0-1-0
     Route: 048
  3. PANTOPRAZOLE [Concomitant]
     Active Substance: PANTOPRAZOLE
     Route: 048

REACTIONS (1)
  - Glomerulonephritis [Unknown]

NARRATIVE: CASE EVENT DATE: 20210224
